FAERS Safety Report 5144891-8 (Version None)
Quarter: 2006Q4

REPORT INFORMATION
  Report Type: 
  Country: None (occurrence: None)
  Receive Date: 20061107
  Receipt Date: 20061030
  Transmission Date: 20070319
  Serious: Yes (Death, Other)
  Sender: FDA-Public Use
  Company Number: US-BAYER-200615464GDS

PATIENT
  Age: 89 Year
  Sex: Male

DRUGS (1)
  1. ASPIRIN [Suspect]
     Route: 048

REACTIONS (4)
  - ANALGESIC DRUG LEVEL INCREASED [None]
  - INCORRECT DOSE ADMINISTERED [None]
  - OESOPHAGEAL OBSTRUCTION [None]
  - OESOPHAGEAL PERFORATION [None]
